FAERS Safety Report 8248870-3 (Version None)
Quarter: 2012Q2

REPORT INFORMATION
  Report Type: 
  Country: None (occurrence: None)
  Receive Date: 20120401
  Receipt Date: 20120319
  Transmission Date: 20120825
  Serious: Yes (Hospitalization)
  Sender: FDA-Public Use
  Company Number: US-ELI_LILLY_AND_COMPANY-US201203006782

PATIENT
  Age: 77 Year
  Sex: Male

DRUGS (2)
  1. DRUG USED IN DIABETES [Concomitant]
     Dosage: 30 UNK, UNK
  2. CYMBALTA [Suspect]
     Indication: ARTHRITIS
     Dosage: 30 MG, QD
     Dates: start: 20120308, end: 20120309

REACTIONS (6)
  - ANGINA PECTORIS [None]
  - PERSONALITY DISORDER [None]
  - HEADACHE [None]
  - OFF LABEL USE [None]
  - AMNESIA [None]
  - FEELING ABNORMAL [None]
